FAERS Safety Report 17925088 (Version 2)
Quarter: 2020Q3

REPORT INFORMATION
  Report Type: Spontaneous
  Country: CN (occurrence: CN)
  Receive Date: 20200622
  Receipt Date: 20200708
  Transmission Date: 20201103
  Serious: Yes (Hospitalization)
  Sender: FDA-Public Use
  Company Number: CN-PFIZER INC-2020238215

PATIENT
  Age: 55 Year
  Sex: Male

DRUGS (4)
  1. WARFARIN SODIUM. [Concomitant]
     Active Substance: WARFARIN SODIUM
     Indication: CENTRAL NERVOUS SYSTEM VASCULITIS
     Dosage: 5.000 MG, 1X/DAY
     Route: 048
     Dates: start: 20200513, end: 20200610
  2. METHYLPREDNISOLONE. [Suspect]
     Active Substance: METHYLPREDNISOLONE
     Indication: CENTRAL NERVOUS SYSTEM VASCULITIS
     Dosage: 6 MG, 1X/DAY
     Route: 048
     Dates: start: 20200513, end: 20200610
  3. WARFARIN SODIUM. [Concomitant]
     Active Substance: WARFARIN SODIUM
     Indication: MOYAMOYA DISEASE
  4. METHYLPREDNISOLONE. [Suspect]
     Active Substance: METHYLPREDNISOLONE
     Indication: MOYAMOYA DISEASE

REACTIONS (8)
  - Pustule [Recovered/Resolved]
  - Blood pressure systolic increased [Unknown]
  - Skin erosion [Recovered/Resolved]
  - Off label use [Unknown]
  - Erythema [Recovered/Resolved]
  - Product use in unapproved indication [Unknown]
  - Respiratory rate increased [Unknown]
  - Skin exfoliation [Recovered/Resolved]

NARRATIVE: CASE EVENT DATE: 20200513
